FAERS Safety Report 5690959-7 (Version None)
Quarter: 2008Q2

REPORT INFORMATION
  Report Type: 
  Country: None (occurrence: None)
  Receive Date: 20080401
  Receipt Date: 20080320
  Transmission Date: 20081010
  Serious: Yes (Other)
  Sender: FDA-Public Use
  Company Number: US-PFIZER INC-2008003886

PATIENT
  Age: 48 Year
  Sex: Male
  Weight: 113.4 kg

DRUGS (3)
  1. CHANTIX [Suspect]
     Indication: TOBACCO ABUSE
     Route: 048
  2. ACE INHIBITOR NOS [Concomitant]
     Indication: BLOOD PRESSURE
  3. CELEBREX [Concomitant]

REACTIONS (1)
  - PENIS DISORDER [None]
